FAERS Safety Report 7573792-0 (Version None)
Quarter: 2011Q2

REPORT INFORMATION
  Report Type: 
  Country: None (occurrence: None)
  Receive Date: 20110627
  Receipt Date: 20110612
  Transmission Date: 20111010
  Serious: No
  Sender: FDA-Public Use
  Company Number: US-B.I. PHARMACEUTICALS,INC./RIDGEFIELD-2011-BP-15300BP

PATIENT
  Sex: Male

DRUGS (7)
  1. FISH OIL [Concomitant]
     Indication: ROUTINE HEALTH MAINTENANCE
     Route: 048
  2. VITAMIN D [Concomitant]
     Indication: ROUTINE HEALTH MAINTENANCE
     Route: 048
  3. PRADAXA [Suspect]
     Indication: ATRIAL FIBRILLATION
     Dosage: 300 MG
     Route: 048
     Dates: start: 20110304, end: 20110611
  4. LISINOPRIL [Concomitant]
     Dosage: 5 MG
     Route: 048
  5. SIMVASTATIN [Concomitant]
     Dosage: 20 MG
     Route: 048
  6. SOTALOL HCL [Concomitant]
     Indication: CARDIAC DISORDER
     Dosage: 240 MG
     Route: 048
     Dates: start: 20080101
  7. LATANOPROST OPHTHALMIC [Concomitant]
     Indication: PROPHYLAXIS

REACTIONS (3)
  - DYSPEPSIA [None]
  - ABDOMINAL PAIN UPPER [None]
  - DYSPNOEA [None]
